FAERS Safety Report 4384877-4 (Version None)
Quarter: 2004Q2

REPORT INFORMATION
  Report Type: 
  Country: None (occurrence: None)
  Receive Date: 20040621
  Receipt Date: 20040609
  Transmission Date: 20050107
  Serious: Yes (Hospitalization)
  Sender: FDA-Public Use
  Company Number: 04P-167-0263336-00

PATIENT
  Age: 58 Year
  Sex: Female

DRUGS (5)
  1. VALPROATE SODIUM [Suspect]
     Dosage: SEE IMAGE
  2. CLOZAPINE [Suspect]
     Indication: SCHIZOPHRENIA
     Dosage: SEE IMAGE
     Dates: start: 20010426
  3. HYOSCINE HYDROBROMIDE [Suspect]
     Dosage: SEE IMAGE
  4. LORAZEPAM [Concomitant]
  5. VENLAFAXINE [Concomitant]

REACTIONS (4)
  - BLOOD SODIUM DECREASED [None]
  - OVERDOSE [None]
  - SEDATION [None]
  - WHITE BLOOD CELL COUNT INCREASED [None]
